FAERS Safety Report 26043588 (Version 1)
Quarter: 2025Q4

REPORT INFORMATION
  Report Type: Spontaneous
  Country: US (occurrence: US)
  Receive Date: 20251113
  Receipt Date: 20251113
  Transmission Date: 20260118
  Serious: No
  Sender: SANOFI AVENTIS
  Company Number: US-SANOFI-02717919

PATIENT
  Age: 50 Year
  Sex: Male

DRUGS (1)
  1. DUPIXENT [Suspect]
     Active Substance: DUPILUMAB
     Indication: Dermatitis atopic
     Dosage: 300 MG QOW

REACTIONS (5)
  - Dermatitis atopic [Unknown]
  - Skin abrasion [Unknown]
  - Blister [Unknown]
  - Skin exfoliation [Unknown]
  - Product dose omission issue [Unknown]
